FAERS Safety Report 4530734-X (Version None)
Quarter: 2004Q4

REPORT INFORMATION
  Report Type: 
  Country: None (occurrence: None)
  Receive Date: 20041217
  Receipt Date: 20041209
  Transmission Date: 20050328
  Serious: Yes (Other)
  Sender: FDA-Public Use
  Company Number: 200404673

PATIENT
  Age: 80 Year
  Sex: Male

DRUGS (3)
  1. TAGAMET [Suspect]
     Indication: LARGE INTESTINE CARCINOMA
     Dosage: 400MG PER DAY
     Route: 065
  2. ISOVORIN [Concomitant]
  3. FLUOROURACIL [Concomitant]

REACTIONS (1)
  - ERYTHROPENIA [None]
